FAERS Safety Report 8508505-9 (Version None)
Quarter: 2012Q3

REPORT INFORMATION
  Report Type: 
  Country: None (occurrence: None)
  Receive Date: 20120713
  Receipt Date: 20120702
  Transmission Date: 20120928
  Serious: Yes (Life-Threatening, Hospitalization, Other)
  Sender: FDA-Public Use
  Company Number: JP-NOVOPROD-354257

PATIENT
  Age: 37 Year
  Sex: Male
  Weight: 81 kg

DRUGS (9)
  1. LASIX [Suspect]
     Dosage: 80 MG, QD
     Route: 048
  2. DIOVAN [Concomitant]
     Indication: HYPERTENSION
     Dosage: 160 MG, QD
     Dates: start: 20080820
  3. LIPITOR [Concomitant]
     Indication: DYSLIPIDAEMIA
     Dosage: 5 MG, QD
     Route: 048
     Dates: start: 20101109
  4. NOVORAPID CHU FLEXPEN [Concomitant]
     Indication: TYPE 2 DIABETES MELLITUS
     Dosage: 20 U, QD
     Route: 058
     Dates: start: 20080820
  5. ALLOPURINOL [Concomitant]
     Indication: DIABETIC NEPHROPATHY
     Dosage: 100 MG, QD
     Route: 048
     Dates: start: 20090713
  6. LEVEMIR [Suspect]
     Indication: TYPE 2 DIABETES MELLITUS
     Dosage: 12 U, QD
     Route: 058
     Dates: start: 20080820, end: 20120201
  7. LASIX [Suspect]
     Indication: DIABETIC NEPHROPATHY
     Dosage: 40 MG, QD
     Route: 048
     Dates: start: 20101206
  8. TRICHLORMETHIAZIDE [Suspect]
     Indication: DIABETIC NEPHROPATHY
     Dosage: 3 MG, QW
     Route: 048
     Dates: start: 20100813
  9. ENALAPRIL MALEATE [Concomitant]
     Indication: HYPERTENSION
     Dosage: 5 MG, QD
     Route: 048
     Dates: start: 20101004

REACTIONS (3)
  - HYPOTHERMIA [None]
  - VENTRICULAR ARRHYTHMIA [None]
  - HYPOGLYCAEMIC UNCONSCIOUSNESS [None]
